FAERS Safety Report 12173108 (Version 3)
Quarter: 2016Q2

REPORT INFORMATION
  Report Type: Spontaneous
  Country: JP (occurrence: JP)
  Receive Date: 20160311
  Receipt Date: 20160429
  Transmission Date: 20160815
  Serious: Yes (Other)
  Sender: FDA-Public Use
  Company Number: JP-TEVA-631096ISR

PATIENT
  Age: 15 Year
  Sex: Male
  Weight: 60.1 kg

DRUGS (15)
  1. VINCRISTINE [Suspect]
     Active Substance: VINCRISTINE
     Indication: NEOPLASM
     Dosage: 2 MG/BODY ON DAY 1
     Route: 042
  2. DOXORUBICIN [Suspect]
     Active Substance: DOXORUBICIN
     Indication: NEOPLASM
     Dosage: 37.5 MG/M2; (60 MG/BODY); ON DAYS 1 AND 2
     Route: 042
  3. FAMOTIDINE. [Concomitant]
     Active Substance: FAMOTIDINE
     Dosage: 40 MILLIGRAM DAILY; 20 MG IV EVERY 12 HOURS
     Route: 042
  4. WARFARIN [Interacting]
     Active Substance: WARFARIN
     Indication: CEREBRAL ARTERY OCCLUSION
     Dosage: 2.5 MILLIGRAM DAILY;
     Route: 048
  5. DOXORUBICIN [Suspect]
     Active Substance: DOXORUBICIN
     Route: 065
  6. APREPITANT. [Concomitant]
     Active Substance: APREPITANT
     Indication: PROPHYLAXIS OF NAUSEA AND VOMITING
     Dosage: 125 MILLIGRAM DAILY; 125 MG ON DAY 1; 3 DAY REGIMEN
     Route: 065
  7. WARFARIN [Suspect]
     Active Substance: WARFARIN
     Indication: CEREBRAL ARTERY OCCLUSION
     Dosage: 2 MILLIGRAM DAILY;
     Route: 048
  8. MESNA. [Concomitant]
     Active Substance: MESNA
     Indication: CYSTITIS HAEMORRHAGIC
     Dosage: 2400 MILLIGRAM DAILY; 600 MG IV EVERY 6 HOURS, ON DAY 1 - 5 IN IE CHEMOTHERAPY
     Route: 042
  9. APREPITANT. [Concomitant]
     Active Substance: APREPITANT
     Dosage: 80 MG ON DAYS 2 AND 3; 3 DAY REGIMEN
     Route: 065
  10. ONDANSETRON [Concomitant]
     Active Substance: ONDANSETRON
     Dosage: 8 MILLIGRAM DAILY; 4 MG EVERY 12 HOURS
     Route: 042
  11. ETOPOSIDE. [Interacting]
     Active Substance: ETOPOSIDE
     Indication: NEOPLASM
     Dosage: 100 MG/M2 (160 MG/BODY) ON DAYS 1-5
     Route: 042
  12. IFOSFAMIDE. [Interacting]
     Active Substance: IFOSFAMIDE
     Indication: NEOPLASM
     Dosage: 1,800 MG/M2; (2,900 MG/BODY) ON DAYS 1-5
     Route: 042
  13. DEXAMETHASONE. [Concomitant]
     Active Substance: DEXAMETHASONE
     Dosage: 6.6 MILLIGRAM DAILY; 3.3 MG IV EVERY 12 HOURS
     Route: 042
  14. FLUCONAZOLE. [Concomitant]
     Active Substance: FLUCONAZOLE
     Indication: FUNGAL INFECTION
     Dosage: 100 MILLIGRAM DAILY;
     Route: 048
  15. CYCLOPHOSPHAMIDE. [Suspect]
     Active Substance: CYCLOPHOSPHAMIDE
     Indication: NEOPLASM
     Dosage: 1,200 MG/M2 (1,900 MG/BODY); ON DAY 1
     Route: 042

REACTIONS (6)
  - Seizure [Unknown]
  - International normalised ratio increased [Recovered/Resolved]
  - Drug interaction [Unknown]
  - Depressed level of consciousness [Unknown]
  - Cytopenia [Unknown]
  - Cerebral artery occlusion [Unknown]
